FAERS Safety Report 6695917-1 (Version None)
Quarter: 2010Q2

REPORT INFORMATION
  Report Type: 
  Country: None (occurrence: None)
  Receive Date: 20100426
  Receipt Date: 20100414
  Transmission Date: 20101027
  Serious: Yes (Other)
  Sender: FDA-Public Use
  Company Number: US-JNJFOC-20091001874

PATIENT
  Sex: Male
  Weight: 68.95 kg

DRUGS (4)
  1. REMICADE [Suspect]
     Indication: CROHN'S DISEASE
     Dosage: 4 INFUSION ON UNSPECIFIED DATES IN THE YEAR PRIOR TO REGISTRATION; LAST INFUSION BEFORE 2003
     Route: 042
  2. AZATHIOPRINE [Suspect]
     Indication: CROHN'S DISEASE
  3. ANTIBIOTICS [Concomitant]
     Indication: CROHN'S DISEASE
  4. ANTISPASMODICS [Concomitant]
     Indication: CROHN'S DISEASE

REACTIONS (3)
  - NODULAR REGENERATIVE HYPERPLASIA [None]
  - PANCYTOPENIA [None]
  - PORTAL HYPERTENSION [None]
